FAERS Safety Report 10341188 (Version 1)
Quarter: 2014Q3

REPORT INFORMATION
  Report Type: Spontaneous
  Country: US (occurrence: US)
  Receive Date: 20140724
  Receipt Date: 20140724
  Transmission Date: 20150326
  Serious: No
  Sender: FDA-Public Use
  Company Number: US-009507513-1407USA010235

PATIENT
  Age: 40 Year
  Sex: Female
  Weight: 70.3 kg

DRUGS (2)
  1. NUVARING [Suspect]
     Active Substance: ETHINYL ESTRADIOL\ETONOGESTREL
     Dosage: ONE RING FOR THREE WEEKS EACH MONTH
     Route: 067
  2. NUVARING [Suspect]
     Active Substance: ETHINYL ESTRADIOL\ETONOGESTREL
     Dosage: ONE RING FOR THREE WEEKS EACH MONTH
     Route: 067
     Dates: start: 20140721, end: 20140721

REACTIONS (4)
  - No adverse event [Unknown]
  - Inappropriate schedule of drug administration [Unknown]
  - Device breakage [Unknown]
  - Device breakage [Unknown]

NARRATIVE: CASE EVENT DATE: 20140721
